FAERS Safety Report 19365002 (Version 1)
Quarter: 2021Q2

REPORT INFORMATION
  Report Type: Spontaneous
  Country: US (occurrence: US)
  Receive Date: 20210602
  Receipt Date: 20210602
  Transmission Date: 20210717
  Serious: No
  Sender: FDA-Public Use
  Company Number: None

PATIENT
  Age: 56 Year
  Sex: Male
  Weight: 113.4 kg

DRUGS (1)
  1. CLOBETASOL PROPIONATE 0?05/SPRAY [Suspect]
     Active Substance: CLOBETASOL PROPIONATE
     Indication: HAND DERMATITIS
     Dates: start: 20190404, end: 20210408

REACTIONS (2)
  - Drug ineffective [None]
  - Product substitution issue [None]

NARRATIVE: CASE EVENT DATE: 20210408
